FAERS Safety Report 7425672-9 (Version None)
Quarter: 2011Q2

REPORT INFORMATION
  Report Type: 
  Country: None (occurrence: None)
  Receive Date: 20110420
  Receipt Date: 20110407
  Transmission Date: 20111010
  Serious: Yes (Death)
  Sender: FDA-Public Use
  Company Number: ES-SANOFI-AVENTIS-2011SA021387

PATIENT
  Age: 73 Year
  Sex: Female

DRUGS (11)
  1. MULTAQ [Suspect]
     Indication: ATRIAL FIBRILLATION
     Route: 048
     Dates: start: 20101201, end: 20101203
  2. OMEPRAZOLE [Concomitant]
     Indication: PROPHYLAXIS AGAINST GASTROINTESTINAL ULCER
     Route: 048
     Dates: start: 20101027, end: 20101203
  3. SINTROM [Concomitant]
     Indication: ATRIAL FIBRILLATION
     Route: 048
     Dates: start: 20101027, end: 20101203
  4. TRYPTIZOL [Concomitant]
  5. ENALAPRIL MALEATE [Concomitant]
     Indication: HYPERTENSION
     Route: 048
     Dates: start: 20101027, end: 20101203
  6. ETOMIDATE [Concomitant]
     Indication: CARDIOVERSION
     Route: 042
     Dates: start: 20101201, end: 20101201
  7. MIDAZOLAM [Concomitant]
     Indication: CARDIOVERSION
     Route: 042
     Dates: start: 20101201, end: 20101201
  8. CALCIUM [Concomitant]
  9. SEGURIL [Concomitant]
     Indication: CARDIAC FAILURE
     Route: 048
     Dates: start: 20101027, end: 20101203
  10. EUTIROX [Concomitant]
     Indication: HYPOTHYROIDISM
  11. MASTICAL [Concomitant]

REACTIONS (1)
  - SUDDEN DEATH [None]
